FAERS Safety Report 9114577 (Version 2)
Quarter: 2013Q3

REPORT INFORMATION
  Report Type: Spontaneous
  Country: US (occurrence: US)
  Receive Date: 20130208
  Receipt Date: 20130809
  Transmission Date: 20140515
  Serious: Yes (Other)
  Sender: FDA-Public Use
  Company Number: US-ROCHE-552291

PATIENT
  Age: 15 Year
  Sex: Male
  Weight: 83.9 kg

DRUGS (1)
  1. ACCUTANE [Suspect]
     Indication: ACNE
     Route: 048
     Dates: start: 19990905, end: 20000221

REACTIONS (9)
  - Inflammatory bowel disease [Recovering/Resolving]
  - Colitis ulcerative [Recovering/Resolving]
  - Depression [Unknown]
  - Large intestine polyp [Unknown]
  - Back pain [Recovered/Resolved]
  - Chapped lips [Unknown]
  - Dry skin [Unknown]
  - Blood triglycerides increased [Unknown]
  - Skin papilloma [Recovering/Resolving]
